FAERS Safety Report 6985563-4 (Version None)
Quarter: 2010Q3

REPORT INFORMATION
  Report Type: 
  Country: None (occurrence: None)
  Receive Date: 20100915
  Receipt Date: 20100909
  Transmission Date: 20110219
  Serious: Yes (Other)
  Sender: FDA-Public Use
  Company Number: JP-MERCK-1009USA00680

PATIENT
  Age: 78 Year
  Sex: Female
  Weight: 68 kg

DRUGS (6)
  1. JANUVIA [Suspect]
     Indication: TYPE 2 DIABETES MELLITUS
     Route: 048
     Dates: start: 20100805, end: 20100809
  2. ACTOS [Concomitant]
     Route: 065
  3. SEIBULE [Concomitant]
     Route: 065
  4. GLUFAST [Concomitant]
     Route: 065
  5. NOVORAPID [Concomitant]
     Route: 065
  6. LIVALO [Concomitant]
     Indication: DYSLIPIDAEMIA
     Route: 065

REACTIONS (2)
  - JOINT SWELLING [None]
  - PYREXIA [None]
